FAERS Safety Report 11434019 (Version 1)
Quarter: 2015Q3

REPORT INFORMATION
  Report Type: Spontaneous
  Country: US (occurrence: US)
  Receive Date: 20150831
  Receipt Date: 20150831
  Transmission Date: 20151125
  Serious: No
  Sender: FDA-Public Use
  Company Number: US-BAYER-2015-406085

PATIENT
  Sex: Female

DRUGS (1)
  1. MIRENA [Suspect]
     Active Substance: LEVONORGESTREL
     Dosage: 20 MCG/24HR, CONT
     Route: 015
     Dates: start: 2012

REACTIONS (10)
  - Complication of device insertion [None]
  - Hormone level abnormal [None]
  - Coital bleeding [None]
  - Seasonal allergy [None]
  - Presyncope [None]
  - Nervousness [None]
  - Device use error [None]
  - Abdominal pain lower [None]
  - Pain [None]
  - Sinus headache [None]

NARRATIVE: CASE EVENT DATE: 2012
